FAERS Safety Report 6816364-5 (Version None)
Quarter: 2010Q3

REPORT INFORMATION
  Report Type: 
  Country: None (occurrence: None)
  Receive Date: 20100705
  Receipt Date: 20100622
  Transmission Date: 20110219
  Serious: Yes (Hospitalization)
  Sender: FDA-Public Use
  Company Number: PHHY2010JP41301

PATIENT
  Sex: Male
  Weight: 57 kg

DRUGS (6)
  1. ICL670A ICL+DISTAB [Suspect]
     Indication: IRON OVERLOAD
     Dosage: 1000 MG, QD
     Route: 048
     Dates: start: 20080924
  2. DESFERAL [Concomitant]
     Indication: IRON OVERLOAD
     Dosage: 500 MG, UNK
     Route: 030
     Dates: start: 19910101, end: 20080917
  3. ALOSITOL [Concomitant]
     Dosage: 100 MG, UNK
     Route: 048
     Dates: start: 20040810, end: 20090803
  4. URSO 250 [Concomitant]
     Dosage: 300 MG, UNK
     Route: 048
     Dates: start: 20040810, end: 20090928
  5. CINAL [Concomitant]
     Dosage: 400 MG, UNK
     Route: 048
     Dates: start: 20040810, end: 20090928
  6. JUVELA [Concomitant]
     Dosage: 200 MG, UNK
     Route: 048
     Dates: start: 20040810, end: 20090928

REACTIONS (1)
  - PNEUMONIA [None]
